FAERS Safety Report 8394818-0 (Version None)
Quarter: 2012Q2

REPORT INFORMATION
  Report Type: 
  Country: None (occurrence: None)
  Receive Date: 20120524
  Receipt Date: 20120508
  Transmission Date: 20120825
  Serious: Yes (Other)
  Sender: FDA-Public Use
  Company Number: 20120294

PATIENT
  Sex: Male

DRUGS (2)
  1. PERCOCET [Concomitant]
  2. SPRIX [Suspect]
     Indication: PRODUCT USED FOR UNKNOWN INDICATION
     Dosage: ONE IN EACH NOSTRIL  NASAL
     Route: 045

REACTIONS (3)
  - PAIN [None]
  - NASAL DISCOMFORT [None]
  - LACRIMATION INCREASED [None]
